FAERS Safety Report 6856645-2 (Version None)
Quarter: 2010Q3

REPORT INFORMATION
  Report Type: 
  Country: None (occurrence: None)
  Receive Date: 20100719
  Receipt Date: 20100624
  Transmission Date: 20110219
  Serious: Yes (Death)
  Sender: FDA-Public Use
  Company Number: GB-MERCK-1006USA03697

PATIENT
  Sex: Male

DRUGS (2)
  1. DECADRON [Suspect]
     Indication: PROSTATE CANCER
     Route: 048
  2. ABIRATERONE ACETATE [Suspect]
     Indication: PROSTATE CANCER
     Route: 065

REACTIONS (1)
  - PULMONARY EMBOLISM [None]
